FAERS Safety Report 7501254-5 (Version None)
Quarter: 2011Q2

REPORT INFORMATION
  Report Type: 
  Country: None (occurrence: None)
  Receive Date: 20110524
  Receipt Date: 20110513
  Transmission Date: 20111010
  Serious: Yes (Hospitalization, Other)
  Sender: FDA-Public Use
  Company Number: US-ELI_LILLY_AND_COMPANY-US201011007255

PATIENT
  Sex: Female

DRUGS (3)
  1. ESTROGEN NOS [Concomitant]
  2. METOPROLOL [Concomitant]
  3. HUMATROPE [Suspect]
     Indication: GROWTH HORMONE DEFICIENCY
     Dosage: 0.8 MG, DAILY (1/D)
     Route: 065
     Dates: start: 20100701

REACTIONS (3)
  - POLYCYSTIC OVARIES [None]
  - UTERINE HAEMORRHAGE [None]
  - UTERINE ENLARGEMENT [None]
